FAERS Safety Report 13769788 (Version 2)
Quarter: 2017Q3

REPORT INFORMATION
  Report Type: Report from Study
  Country: US (occurrence: US)
  Receive Date: 20170719
  Receipt Date: 20170721
  Transmission Date: 20171127
  Serious: Yes (Disabling, Other)
  Sender: FDA-Public Use
  Company Number: US-009507513-1707USA003646

PATIENT
  Age: 57 Year
  Sex: Female

DRUGS (11)
  1. AMLODIPINE [Concomitant]
     Active Substance: AMLODIPINE BESYLATE
  2. ACETAMINOPHEN (+) BUTALBITAL (+) CAFFEINE [Concomitant]
     Indication: HEADACHE
     Dosage: UNK
     Dates: start: 2017, end: 2017
  3. MELOXICAM. [Concomitant]
     Active Substance: MELOXICAM
  4. OBESITY RESEARCH LIPOZENE [Concomitant]
  5. SERTRALINE HYDROCHLORIDE. [Concomitant]
     Active Substance: SERTRALINE HYDROCHLORIDE
  6. NEDOX [Concomitant]
  7. EXCEDRIN MIGRAINE [Concomitant]
     Active Substance: ACETAMINOPHEN\ASPIRIN\CAFFEINE
     Indication: HEADACHE
     Dosage: UNK
     Dates: start: 2017
  8. OLMESARTAN MEDOXOMIL. [Concomitant]
     Active Substance: OLMESARTAN MEDOXOMIL
  9. HYDROCHLOROTHIAZIDE. [Concomitant]
     Active Substance: HYDROCHLOROTHIAZIDE
  10. PEMBROLIZUMAB. [Suspect]
     Active Substance: PEMBROLIZUMAB
     Indication: NON-SMALL CELL LUNG CANCER
     Dosage: STRENGTH: 100 MG, UNKNOWN DOSE, EVERY 3 WEEKS
     Route: 042
     Dates: start: 20170323
  11. BENADRYL [Concomitant]
     Active Substance: DIPHENHYDRAMINE HYDROCHLORIDE
     Dosage: UNK
     Route: 042

REACTIONS (13)
  - Administration site pain [Unknown]
  - Disability [Not Recovered/Not Resolved]
  - Infusion related reaction [Recovered/Resolved]
  - Infusion related reaction [Not Recovered/Not Resolved]
  - Therapeutic response unexpected [Unknown]
  - Instillation site paraesthesia [Not Recovered/Not Resolved]
  - Intracranial mass [Unknown]
  - Increased appetite [Recovered/Resolved]
  - Therapeutic response unexpected [Unknown]
  - Brain oedema [Not Recovered/Not Resolved]
  - Weight increased [Unknown]
  - Somnolence [Recovered/Resolved]
  - Infusion related reaction [Not Recovered/Not Resolved]

NARRATIVE: CASE EVENT DATE: 2017
